FAERS Safety Report 4275895-5 (Version None)
Quarter: 2004Q1

REPORT INFORMATION
  Report Type: 
  Country: None (occurrence: None)
  Receive Date: 20040121
  Receipt Date: 20030225
  Transmission Date: 20041129
  Serious: No
  Sender: FDA-Public Use
  Company Number: US-GLAXOSMITHKLINE-A0397996A

PATIENT
  Age: 11 Year
  Sex: Female

DRUGS (1)
  1. VALTREX [Suspect]
     Indication: ERYTHEMA MULTIFORME
     Dosage: 500MG TWICE PER DAY
     Route: 048

REACTIONS (1)
  - ABDOMINAL PAIN UPPER [None]
